FAERS Safety Report 4490010-0 (Version None)
Quarter: 2004Q4

REPORT INFORMATION
  Report Type: 
  Country: None (occurrence: None)
  Receive Date: 20041028
  Receipt Date: 20041025
  Transmission Date: 20050328
  Serious: Yes (Death)
  Sender: FDA-Public Use
  Company Number: TCI2004A03921

PATIENT
  Age: 64 Year
  Sex: Male

DRUGS (13)
  1. TAKEPRON OD TABLETS 15 (LANSOPRAZOLE) (TABLETS) [Suspect]
     Indication: GASTRIC ULCER HAEMORRHAGE
     Dosage: 15 MG (15 MG, 1 IN 1 D) PER ORAL
     Route: 048
     Dates: start: 20040901, end: 20040905
  2. TAKEPRON OD TABLETS 15 (LANSOPRAZOLE) (TABLETS) [Suspect]
     Indication: METASTASES TO STOMACH
     Dosage: 15 MG (15 MG, 1 IN 1 D) PER ORAL
     Route: 048
     Dates: start: 20040901, end: 20040905
  3. DEPALENE (VALPROATE SODIUM) [Concomitant]
  4. ALLOID G (SODIUM ALGINATE) [Concomitant]
  5. BIOFERMIN (BIOFERMIN) [Concomitant]
  6. RACOL (PARENTERAL NUTRITION 9) [Concomitant]
  7. OMEPRAZOLE [Concomitant]
  8. AMINOFLUID (AMINOFLUID) [Concomitant]
  9. NEOLAMIN 3B INJ. (NEOLAMIN 3B INJ.) [Concomitant]
  10. PRIMPERAN TAB [Concomitant]
  11. BETAMETHASONE [Concomitant]
  12. GLYCEOL (GLYCEOL) [Concomitant]
  13. ASCORBIC ACID [Concomitant]

REACTIONS (8)
  - BLOOD PRESSURE DECREASED [None]
  - DISSEMINATED INTRAVASCULAR COAGULATION [None]
  - GENERAL PHYSICAL HEALTH DETERIORATION [None]
  - LUNG NEOPLASM MALIGNANT [None]
  - MALIGNANT NEOPLASM PROGRESSION [None]
  - METABOLIC ACIDOSIS [None]
  - SEPSIS [None]
  - THROMBOCYTOPENIA [None]
